FAERS Safety Report 7965026-X (Version None)
Quarter: 2011Q4

REPORT INFORMATION
  Report Type: 
  Country: None (occurrence: None)
  Receive Date: 20111208
  Receipt Date: 20111125
  Transmission Date: 20120403
  Serious: No
  Sender: FDA-Public Use
  Company Number: US-BAYER-2011-114284

PATIENT

DRUGS (1)
  1. LEVITRA [Suspect]
     Dosage: UNK
     Dates: start: 20111001

REACTIONS (1)
  - HEADACHE [None]
